FAERS Safety Report 15685926 (Version 1)
Quarter: 2018Q4

REPORT INFORMATION
  Report Type: Spontaneous
  Country: US (occurrence: US)
  Receive Date: 20181204
  Receipt Date: 20181204
  Transmission Date: 20190205
  Serious: No
  Sender: FDA-Public Use
  Company Number: US-SA-2018SA326629

PATIENT
  Age: 55 Year
  Sex: Male

DRUGS (2)
  1. PRALUENT [Suspect]
     Active Substance: ALIROCUMAB
     Indication: TYPE V HYPERLIPIDAEMIA
     Dosage: 150 MG/ML, QOW
     Route: 058
     Dates: start: 20171117
  2. SIMVASTATIN. [Concomitant]
     Active Substance: SIMVASTATIN
     Dosage: 20 MG

REACTIONS (3)
  - Muscle tightness [Unknown]
  - Arthralgia [Unknown]
  - Swelling [Unknown]

NARRATIVE: CASE EVENT DATE: 20171117
